FAERS Safety Report 16213550 (Version 2)
Quarter: 2019Q2

REPORT INFORMATION
  Report Type: Spontaneous
  Country: US (occurrence: US)
  Receive Date: 20190418
  Receipt Date: 20190501
  Transmission Date: 20190711
  Serious: Yes (Other)
  Sender: FDA-Public Use
  Company Number: US-AKORN PHARMACEUTICALS-2019AKN00771

PATIENT
  Age: 22 Year
  Sex: Male
  Weight: 67.57 kg

DRUGS (3)
  1. AMOXICILLIN. [Concomitant]
     Active Substance: AMOXICILLIN
     Dosage: 875 MG, 2X/DAY
  2. ACZONE [Concomitant]
     Active Substance: DAPSONE
     Dosage: UNK, 2X/DAY
  3. MYORISAN [Suspect]
     Active Substance: ISOTRETINOIN
     Indication: ACNE
     Dosage: 40 MG, 1X/DAY
     Route: 048
     Dates: start: 20190313, end: 20190403

REACTIONS (6)
  - Nightmare [Recovering/Resolving]
  - Dyspnoea [Recovering/Resolving]
  - Off label use [Recovered/Resolved]
  - Insomnia [Recovering/Resolving]
  - Panic attack [Recovering/Resolving]
  - Tachyphrenia [Recovering/Resolving]

NARRATIVE: CASE EVENT DATE: 20190313
